FAERS Safety Report 7505355-7 (Version None)
Quarter: 2011Q2

REPORT INFORMATION
  Report Type: 
  Country: None (occurrence: None)
  Receive Date: 20110526
  Receipt Date: 20110518
  Transmission Date: 20111010
  Serious: Yes (Hospitalization, Other)
  Sender: FDA-Public Use
  Company Number: US-ABBOTT-11P-163-0727049-00

PATIENT
  Sex: Male

DRUGS (11)
  1. ASPIRIN [Concomitant]
     Indication: PRODUCT USED FOR UNKNOWN INDICATION
  2. VIAGRA [Concomitant]
     Indication: PRODUCT USED FOR UNKNOWN INDICATION
  3. RAPTIVA [Suspect]
     Indication: PSORIASIS
  4. ALLOPURINOL [Concomitant]
     Indication: GOUT
  5. METHOTREXATE [Suspect]
     Indication: PSORIASIS
  6. TACLONEX [Concomitant]
     Indication: PSORIASIS
  7. FISH OIL [Concomitant]
     Indication: PRODUCT USED FOR UNKNOWN INDICATION
  8. ENBREL [Suspect]
     Indication: PSORIASIS
  9. HUMIRA [Suspect]
     Indication: PSORIASIS
     Route: 058
     Dates: start: 20091016, end: 20110421
  10. CLOBETASOL PROPIONATE [Concomitant]
     Indication: PRODUCT USED FOR UNKNOWN INDICATION
  11. NORCO [Concomitant]
     Indication: PAIN

REACTIONS (6)
  - LYMPHOMA [None]
  - ABDOMINAL PAIN [None]
  - B-CELL LYMPHOMA [None]
  - PANCREATIC NEOPLASM [None]
  - BLOOD LACTATE DEHYDROGENASE INCREASED [None]
  - HYPERHIDROSIS [None]
